FAERS Safety Report 9002681 (Version 1)
Quarter: 2013Q1

REPORT INFORMATION
  Report Type: Spontaneous
  Country: US (occurrence: US)
  Receive Date: 20130107
  Receipt Date: 20130107
  Transmission Date: 20140127
  Serious: Yes (Hospitalization)
  Sender: FDA-Public Use
  Company Number: US-009507513-1301USA001193

PATIENT
  Age: 93 Year
  Sex: Female

DRUGS (8)
  1. SINGULAIR [Suspect]
     Dosage: 1 DK, QD
     Route: 048
  2. ALDACTONE TABLETS [Suspect]
     Dosage: 25 MG, UNK
     Route: 048
  3. KARDEGIC [Suspect]
     Route: 048
  4. BURINEX [Suspect]
     Dosage: 0.5 DF, UNK
     Route: 048
  5. SPASMINE [Suspect]
     Dosage: 2 DF, QD
     Route: 048
  6. CORVASAL [Suspect]
     Dosage: 4 MG, TID
     Route: 048
  7. DIGITALINE [Concomitant]
  8. LEVOTHYROXINE SODIUM [Concomitant]

REACTIONS (1)
  - Microcytic anaemia [Unknown]
